FAERS Safety Report 5960374-7 (Version None)
Quarter: 2008Q4

REPORT INFORMATION
  Report Type: 
  Country: None (occurrence: None)
  Receive Date: 20081114
  Receipt Date: 20080814
  Transmission Date: 20090506
  Serious: Yes (Other)
  Sender: FDA-Public Use
  Company Number: 2008S1000289

PATIENT
  Sex: Male
  Weight: 125.7 kg

DRUGS (14)
  1. CUBICIN [Suspect]
     Indication: STREPTOCOCCAL BACTERAEMIA
     Dosage: 6 MG/KG;Q24H;IV
     Route: 042
     Dates: start: 20071226, end: 20080111
  2. LINEZOLID [Concomitant]
  3. MEROPENEM [Concomitant]
  4. FLAGYL [Concomitant]
  5. BETA2-AGONIST [Concomitant]
  6. METHYLPREDNISOLONE 16MG TAB [Concomitant]
  7. REGLAN [Concomitant]
  8. LOVENOX [Concomitant]
  9. ANTICHOLINERGICS [Concomitant]
  10. POTASSIUM CHLORIDE [Concomitant]
  11. LASIX [Concomitant]
  12. FAMOTIDINE [Concomitant]
  13. LEVOFLOXACIN [Concomitant]
  14. PIPERACILLIN SODIUM AND TAZOBACTAM SODIUM [Concomitant]

REACTIONS (1)
  - THROMBOCYTOPENIA [None]
